FAERS Safety Report 6336539-1 (Version None)
Quarter: 2009Q3

REPORT INFORMATION
  Report Type: 
  Country: None (occurrence: None)
  Receive Date: 20090901
  Receipt Date: 20090824
  Transmission Date: 20100115
  Serious: Yes (Life-Threatening)
  Sender: FDA-Public Use
  Company Number: FR-ROCHE-628074

PATIENT
  Sex: Male
  Weight: 57.5 kg

DRUGS (15)
  1. MIRCERA [Suspect]
     Dosage: AMOUNT REPORTED: 200 MCG/0.3 ML
     Route: 042
     Dates: start: 20090407, end: 20090407
  2. MIMPARA [Concomitant]
     Route: 048
     Dates: start: 20090307
  3. MIMPARA [Concomitant]
     Route: 048
  4. VENOFER [Concomitant]
     Route: 042
     Dates: start: 20090404
  5. LASIX [Concomitant]
     Dosage: DRUG REPORTED: LASILIX 500
     Route: 048
     Dates: start: 20090203
  6. RENAGEL [Concomitant]
     Route: 048
     Dates: start: 20090307
  7. SPECIAFOLDINE [Concomitant]
     Route: 048
     Dates: start: 20090113
  8. SPECIAFOLDINE [Concomitant]
     Route: 048
  9. ZYLORIC [Concomitant]
     Dosage: DRUG REPORTED: ZYLORIC 100
     Route: 048
     Dates: start: 20090113
  10. ZYLORIC [Concomitant]
     Route: 048
  11. VITAMIN B-12 [Concomitant]
     Dosage: DRUG REPORTED: VITAMINE B12
     Route: 048
  12. VITAMIN B-12 [Concomitant]
     Route: 048
  13. DUPHALAC [Concomitant]
     Dosage: DOSE: 2 SACHETS A DAY
     Route: 048
     Dates: start: 20090228
  14. SODIUM BICARBONATE IN PLASTIC CONTAINER [Concomitant]
     Dosage: PATIENT RECEIVED GELULES OF SODIUM BICARBONATE
     Route: 048
     Dates: start: 20090113
  15. SODIUM BICARBONATE IN PLASTIC CONTAINER [Concomitant]
     Route: 048

REACTIONS (1)
  - ANAPHYLACTOID SHOCK [None]
